FAERS Safety Report 10630826 (Version 1)
Quarter: 2014Q4

REPORT INFORMATION
  Report Type: Spontaneous
  Country: US (occurrence: US)
  Receive Date: 20141205
  Receipt Date: 20141205
  Transmission Date: 20150529
  Serious: No
  Sender: FDA-Public Use
  Company Number: US-BRISTOL-MYERS SQUIBB COMPANY-20673505

PATIENT
  Age: 65 Year
  Sex: Female
  Weight: 68.03 kg

DRUGS (1)
  1. YERVOY [Suspect]
     Active Substance: IPILIMUMAB
     Route: 042
     Dates: end: 20140417

REACTIONS (2)
  - Off label use [Unknown]
  - Tumour pain [Unknown]

NARRATIVE: CASE EVENT DATE: 20140423
